FAERS Safety Report 11705902 (Version 1)
Quarter: 2015Q4

REPORT INFORMATION
  Report Type: Other
  Country: CZ (occurrence: CZ)
  Receive Date: 20151106
  Receipt Date: 20151106
  Transmission Date: 20160304
  Serious: Yes (Hospitalization)
  Sender: FDA-Public Use
  Company Number: CZ-ENDO PHARMACEUTICALS INC-2015-003693

PATIENT
  Age: 18 Month
  Sex: Female

DRUGS (1)
  1. PENICILLIN V POTASSIUM ORAL SOLUTION [Suspect]
     Active Substance: PENICILLIN V POTASSIUM
     Indication: TONSILLITIS
     Route: 048

REACTIONS (5)
  - Metabolic acidosis [None]
  - Tubulointerstitial nephritis [Recovering/Resolving]
  - Off label use [Unknown]
  - Rash macular [None]
  - Leukocytosis [None]
